FAERS Safety Report 15168587 (Version 3)
Quarter: 2018Q4

REPORT INFORMATION
  Report Type: Report from Study
  Country: DE (occurrence: DE)
  Receive Date: 20180719
  Receipt Date: 20181123
  Transmission Date: 20190204
  Serious: Yes (Death, Other)
  Sender: FDA-Public Use
  Company Number: DE-ROCHE-2099406

PATIENT
  Sex: Female
  Weight: 85 kg

DRUGS (2)
  1. BEVACIZUMAB. [Suspect]
     Active Substance: BEVACIZUMAB
     Indication: BREAST CANCER
     Route: 065
     Dates: start: 20110512, end: 20110721
  2. PACLITAXEL. [Concomitant]
     Active Substance: PACLITAXEL
     Indication: BREAST CANCER
     Route: 065
     Dates: start: 20110512, end: 20110721

REACTIONS (2)
  - Breast cancer recurrent [Unknown]
  - Death [Fatal]
